FAERS Safety Report 7087783-X (Version None)
Quarter: 2010Q4

REPORT INFORMATION
  Report Type: 
  Country: None (occurrence: None)
  Receive Date: 20101108
  Receipt Date: 20101025
  Transmission Date: 20110411
  Serious: Yes (Other)
  Sender: FDA-Public Use
  Company Number: DE-RANBAXY-2010RR-39127

PATIENT

DRUGS (17)
  1. CEFUROXIME [Suspect]
     Indication: INFECTION
     Dosage: 1 TABLET
     Route: 048
     Dates: start: 20101019
  2. CEFUROXIME [Suspect]
     Dosage: 500 MG, UNK
     Route: 048
     Dates: start: 20101020
  3. VOLTAREN RES. [Concomitant]
     Indication: RHEUMATOID ARTHRITIS
     Dosage: 600 MG, QD
  4. CORTISONE [Concomitant]
     Indication: RHEUMATOID ARTHRITIS
     Dosage: 5 MG, QD
  5. LISIHEXAL [Concomitant]
     Dosage: 5 MG, BID
  6. RESTEX TABLETS [Concomitant]
     Dosage: 125 MG, QD
  7. RESTEX PROLONGED RELEASE TABLETS [Concomitant]
     Dosage: 125 MG, QD
  8. LITHIUM [Concomitant]
     Dosage: 250 MG, QD
  9. SEROQUEL [Concomitant]
     Dosage: 2.5 MG, BID
  10. ACTOREL [Concomitant]
     Dosage: UNK
  11. METHOTREXATE AND FOLIC ACID [Concomitant]
     Dosage: 7.5 MG, 1/WEEK
  12. TEVANATE 70MG [Concomitant]
     Dosage: UNK MG, UNK
  13. DECORTIN H 5MG [Concomitant]
     Dosage: UNK MG, UNK
  14. EUTHYROX 50UG [Concomitant]
     Dosage: UNK UG, UNK
  15. TRACLEER [Concomitant]
     Dosage: 125 MG, BID
  16. QUILONUM RET. 225MG [Concomitant]
     Dosage: UNK MG, UNK
  17. PANTOPRAZOLE-CT 40MG [Concomitant]

REACTIONS (4)
  - APHASIA [None]
  - CONFUSIONAL STATE [None]
  - DIPLOPIA [None]
  - DIZZINESS [None]
